FAERS Safety Report 7574732-0 (Version None)
Quarter: 2011Q2

REPORT INFORMATION
  Report Type: 
  Country: None (occurrence: None)
  Receive Date: 20110627
  Receipt Date: 20110623
  Transmission Date: 20111010
  Serious: Yes (Hospitalization)
  Sender: FDA-Public Use
  Company Number: GXKR2010ES07410

PATIENT
  Age: 48 Year
  Sex: Female

DRUGS (1)
  1. VENLAFAXINE [Suspect]
     Indication: ABNORMAL BEHAVIOUR
     Dosage: MORE THAN 7.5 G
     Route: 048

REACTIONS (14)
  - HYPERREFLEXIA [None]
  - ANTISOCIAL BEHAVIOUR [None]
  - MUSCLE RIGIDITY [None]
  - COGNITIVE DISORDER [None]
  - INCONTINENCE [None]
  - LETHARGY [None]
  - RESTLESSNESS [None]
  - REGRESSIVE BEHAVIOUR [None]
  - GRAND MAL CONVULSION [None]
  - STEREOTYPY [None]
  - INTENTIONAL OVERDOSE [None]
  - SPEECH DISORDER [None]
  - LOSS OF CONSCIOUSNESS [None]
  - SUICIDE ATTEMPT [None]
